FAERS Safety Report 7676673-7 (Version None)
Quarter: 2011Q3

REPORT INFORMATION
  Report Type: 
  Country: None (occurrence: None)
  Receive Date: 20110811
  Receipt Date: 20110809
  Transmission Date: 20111222
  Serious: Yes (Hospitalization, Other)
  Sender: FDA-Public Use
  Company Number: FR-PFIZER INC-2011182003

PATIENT
  Age: 86 Year
  Sex: Female

DRUGS (1)
  1. EFFEXOR XR [Suspect]
     Dosage: 1 DF, 2X/DAY
     Route: 048
     Dates: start: 20110201, end: 20110501

REACTIONS (2)
  - EPILEPSY [None]
  - PNEUMONIA ASPIRATION [None]
